FAERS Safety Report 8158438-5 (Version None)
Quarter: 2012Q1

REPORT INFORMATION
  Report Type: 
  Country: None (occurrence: None)
  Receive Date: 20120223
  Receipt Date: 20120221
  Transmission Date: 20120608
  Serious: No
  Sender: FDA-Public Use
  Company Number: US-PFIZER INC-2012035557

PATIENT
  Sex: Female
  Weight: 82.993 kg

DRUGS (3)
  1. CHANTIX [Suspect]
     Indication: SMOKING CESSATION THERAPY
     Dosage: 0.5 MG, DAILY
     Route: 048
     Dates: start: 20120202
  2. CHANTIX [Suspect]
     Dosage: UNK
     Route: 048
  3. METFORMIN HCL [Suspect]
     Indication: POLYCYSTIC OVARIES
     Dosage: 1500 MG, DAILY
     Dates: start: 20110501

REACTIONS (3)
  - WEIGHT DECREASED [None]
  - HEADACHE [None]
  - URTICARIA [None]
